FAERS Safety Report 16702982 (Version 1)
Quarter: 2019Q3

REPORT INFORMATION
  Report Type: Report from Study
  Country: IL (occurrence: IL)
  Receive Date: 20190814
  Receipt Date: 20190814
  Transmission Date: 20191004
  Serious: Yes (Other)
  Sender: FDA-Public Use
  Company Number: IL-009507513-1807ISR005808

PATIENT
  Age: 80 Year
  Sex: Female

DRUGS (4)
  1. GLUBEN [Suspect]
     Active Substance: GLYBURIDE
     Dosage: QUARTER OF A PILL, UNK
     Route: 048
  2. SITAGLIPTIN PHOSPHATE [Suspect]
     Active Substance: SITAGLIPTIN PHOSPHATE
     Dosage: 100 UNK, ONCE A DAY IN THE MORNING
     Route: 048
     Dates: start: 201807
  3. SITAGLIPTIN PHOSPHATE [Suspect]
     Active Substance: SITAGLIPTIN PHOSPHATE
     Dosage: UNK
     Route: 048
  4. SITAGLIPTIN PHOSPHATE (+) METFORMIN HYDROCHLORIDE [Suspect]
     Active Substance: METFORMIN HYDROCHLORIDE\SITAGLIPTIN PHOSPHATE
     Dosage: 50/1000 MG TABLET ONCE A DAY
     Route: 048
     Dates: start: 20180710, end: 20180711

REACTIONS (9)
  - Abdominal pain [Unknown]
  - Gallbladder operation [Unknown]
  - Asthenia [Unknown]
  - Feeling abnormal [Not Recovered/Not Resolved]
  - Eye disorder [Unknown]
  - Eyeball avulsion [Unknown]
  - Dyspepsia [Unknown]
  - Inappropriate schedule of product administration [Unknown]
  - Diarrhoea [Not Recovered/Not Resolved]

NARRATIVE: CASE EVENT DATE: 20180710
